FAERS Safety Report 18627765 (Version 1)
Quarter: 2020Q4

REPORT INFORMATION
  Report Type: Spontaneous
  Country: DE (occurrence: DE)
  Receive Date: 20201217
  Receipt Date: 20201217
  Transmission Date: 20210114
  Serious: Yes (Hospitalization, Other)
  Sender: FDA-Public Use
  Company Number: DE-MYLANLABS-2020M1101685

PATIENT
  Age: 63 Year
  Sex: Female

DRUGS (1)
  1. METHOTREXATE. [Suspect]
     Active Substance: METHOTREXATE
     Indication: RHEUMATOID ARTHRITIS
     Dosage: UNK UNK, QW(1 X W?CHENTLICH)
     Route: 058
     Dates: start: 20150101

REACTIONS (4)
  - Alveolitis [Unknown]
  - Sepsis [Unknown]
  - Overdose [Unknown]
  - Respiratory failure [Unknown]

NARRATIVE: CASE EVENT DATE: 20201120
